FAERS Safety Report 10183647 (Version 1)
Quarter: 2014Q2

REPORT INFORMATION
  Report Type: Spontaneous
  Country: US (occurrence: US)
  Receive Date: 20140520
  Receipt Date: 20140520
  Transmission Date: 20141212
  Serious: Yes (Hospitalization)
  Sender: FDA-Public Use
  Company Number: US-PFIZER INC-2014131005

PATIENT
  Age: 52 Year
  Sex: Female

DRUGS (8)
  1. AZITHROMYCIN [Suspect]
     Dosage: 500 MG, DAILY
     Route: 042
  2. CLOZAPINE [Interacting]
     Indication: SCHIZOPHRENIA
     Dosage: 100 MG EVERY MORNING AND 350 MG AT BEDTIME
  3. OXYBUTYNIN [Concomitant]
     Dosage: 20 MG, UNK
  4. ESCITALOPRAM [Concomitant]
     Dosage: 40 MG, UNK
  5. ASPIRIN [Concomitant]
     Dosage: 81 MG, UNK
  6. ALBUTEROL SULFATE/IPRATROPIUM BROMIDE [Concomitant]
     Dosage: UNK
  7. FLUTICASONE, SALMETEROL [Concomitant]
     Dosage: UNK
  8. ALBUTEROL [Concomitant]
     Dosage: UNK

REACTIONS (2)
  - Drug interaction [Unknown]
  - Toxicity to various agents [Recovered/Resolved]
